FAERS Safety Report 23207723 (Version 3)
Quarter: 2024Q3

REPORT INFORMATION
  Report Type: Spontaneous
  Country: FR (occurrence: FR)
  Receive Date: 20231120
  Receipt Date: 20240924
  Transmission Date: 20241016
  Serious: Yes (Other)
  Sender: CELLTRION
  Company Number: FR-CELLTRION INC.-2023FR022063

PATIENT

DRUGS (14)
  1. TRASTUZUMAB [Suspect]
     Active Substance: TRASTUZUMAB
     Indication: Mixed hepatocellular cholangiocarcinoma
     Dosage: UNK
     Route: 065
  2. TRASTUZUMAB [Suspect]
     Active Substance: TRASTUZUMAB
     Indication: Cholangiocarcinoma
  3. BEVACIZUMAB [Suspect]
     Active Substance: BEVACIZUMAB
     Indication: Cholangiocarcinoma
     Dosage: 15 MILLIGRAM PER KILOGRAM, Q3WK
     Route: 065
     Dates: start: 202009, end: 202301
  4. BEVACIZUMAB [Suspect]
     Active Substance: BEVACIZUMAB
     Dosage: 15 MG/KG, EVERY 3 WEEKS
     Route: 042
  5. ATEZOLIZUMAB [Suspect]
     Active Substance: ATEZOLIZUMAB
     Indication: Cholangiocarcinoma
     Dosage: 1200 MILLIGRAM, Q3WK
     Route: 065
  6. ATEZOLIZUMAB [Suspect]
     Active Substance: ATEZOLIZUMAB
     Indication: Mixed hepatocellular cholangiocarcinoma
     Dosage: 1200 MG, EVERY 3 WEEKS
     Route: 042
  7. CISPLATIN [Suspect]
     Active Substance: CISPLATIN
     Indication: Cholangiocarcinoma
     Dosage: UNK
     Route: 065
  8. GEMCITABINE [Suspect]
     Active Substance: GEMCITABINE
     Indication: Cholangiocarcinoma
     Dosage: UNK
     Route: 065
  9. LENVATINIB [Suspect]
     Active Substance: LENVATINIB
     Indication: Cholangiocarcinoma
     Route: 065
  10. SORAFENIB [Suspect]
     Active Substance: SORAFENIB
     Indication: Cholangiocarcinoma
     Route: 065
  11. SORAFENIB [Suspect]
     Active Substance: SORAFENIB
     Indication: Mixed hepatocellular cholangiocarcinoma
  12. OLAPARIB [Suspect]
     Active Substance: OLAPARIB
     Indication: Cholangiocarcinoma
     Route: 065
  13. OLAPARIB [Suspect]
     Active Substance: OLAPARIB
     Indication: Mixed hepatocellular cholangiocarcinoma
  14. CISPLATIN;GEMCITABINE [Concomitant]
     Indication: Mixed hepatocellular cholangiocarcinoma

REACTIONS (5)
  - Mixed hepatocellular cholangiocarcinoma [Recovered/Resolved]
  - Anaemia [Unknown]
  - Thrombocytopenia [Unknown]
  - Off label use [Unknown]
  - Therapy non-responder [Unknown]
